FAERS Safety Report 24760864 (Version 1)
Quarter: 2024Q4

REPORT INFORMATION
  Report Type: Spontaneous
  Country: US (occurrence: None)
  Receive Date: 20241218
  Receipt Date: 20241218
  Transmission Date: 20250114
  Serious: Yes (Death)
  Sender: Public
  Company Number: None

PATIENT
  Age: 81 Year
  Sex: Female
  Weight: 40.5 kg

DRUGS (1)
  1. COMPLEMENTARY ALTERNATIVE MEDICINE (CAM) PRODUCT, OTHER [Suspect]
     Active Substance: COMPLEMENTARY ALTERNATIVE MEDICINE (CAM) PRODUCT, OTHER
     Indication: Neoplasm malignant
     Dates: start: 20230429, end: 20240514

REACTIONS (3)
  - Product use in unapproved indication [None]
  - Metastatic neoplasm [None]
  - Circumstance or information capable of leading to medication error [None]

NARRATIVE: CASE EVENT DATE: 20230429
